FAERS Safety Report 9558405 (Version 1)
Quarter: 2013Q3

REPORT INFORMATION
  Report Type: Spontaneous
  Country: GB (occurrence: GB)
  Receive Date: 20130926
  Receipt Date: 20130926
  Transmission Date: 20140515
  Serious: Yes (Other)
  Sender: FDA-Public Use
  Company Number: GB-WATSON-2013-16907

PATIENT
  Age: 66 Year
  Sex: Female
  Weight: 50 kg

DRUGS (3)
  1. BUSPIRONE [Suspect]
     Indication: ANXIETY
     Dosage: 15 MG, DAILY
     Route: 065
     Dates: start: 201304, end: 201307
  2. ESCITALOPRAM [Concomitant]
     Indication: ANXIETY
     Dosage: 15 MG, UNKNOWN
     Route: 065
     Dates: start: 2008
  3. DOMPERIDONE [Concomitant]
     Indication: NAUSEA
     Dosage: 10 MG, UNKNOWN
     Route: 065
     Dates: start: 2001

REACTIONS (3)
  - Chest pain [Recovered/Resolved]
  - Abdominal pain [Recovered/Resolved]
  - Nausea [Not Recovered/Not Resolved]
